FAERS Safety Report 6212667-6 (Version None)
Quarter: 2009Q2

REPORT INFORMATION
  Report Type: 
  Country: None (occurrence: None)
  Receive Date: 20090603
  Receipt Date: 20090524
  Transmission Date: 20091009
  Serious: Yes (Hospitalization)
  Sender: FDA-Public Use
  Company Number: US-ROCHE-634859

PATIENT
  Sex: Female

DRUGS (2)
  1. PEG-INTERFERON A-2A (RO 25-8310) [Suspect]
     Indication: HEPATITIS C
     Dosage: FORM: PFS; COMPLETED THERAPY
     Route: 065
     Dates: start: 20080523, end: 20090327
  2. RIBAVIRIN [Suspect]
     Indication: HEPATITIS C
     Route: 065
     Dates: start: 20080523, end: 20090327

REACTIONS (8)
  - DRUG HYPERSENSITIVITY [None]
  - DYSPNOEA [None]
  - ELECTROLYTE IMBALANCE [None]
  - FALL [None]
  - HEPATITIS [None]
  - SYNCOPE [None]
  - URTICARIA [None]
  - VIRAL INFECTION [None]
